FAERS Safety Report 23836820 (Version 1)
Quarter: 2024Q2

REPORT INFORMATION
  Report Type: Spontaneous
  Country: AR (occurrence: AR)
  Receive Date: 20240509
  Receipt Date: 20240509
  Transmission Date: 20240716
  Serious: Yes (Other)
  Sender: FDA-Public Use
  Company Number: AR-SANDOZ-SDZ2024AR046923

PATIENT
  Age: 11 Year
  Sex: Male
  Weight: 49 kg

DRUGS (1)
  1. OMNITROPE [Suspect]
     Active Substance: SOMATROPIN
     Indication: Growth retardation
     Dosage: 1,2 FOR 7 FREQUENCY
     Route: 058
     Dates: start: 20200825

REACTIONS (3)
  - Facial paralysis [Unknown]
  - Dengue fever [Recovered/Resolved]
  - Cyst [Unknown]

NARRATIVE: CASE EVENT DATE: 20240315
